FAERS Safety Report 23210743 (Version 3)
Quarter: 2024Q4

REPORT INFORMATION
  Report Type: Spontaneous
  Country: US (occurrence: US)
  Receive Date: 20231121
  Receipt Date: 20241127
  Transmission Date: 20250114
  Serious: Yes (Other)
  Sender: PFIZER
  Company Number: US-PFIZER INC-PV202300187955

PATIENT
  Age: 26 Year
  Sex: Male

DRUGS (2)
  1. BENEFIX [Suspect]
     Active Substance: COAGULATION FACTOR IX RECOMBINANT HUMAN\ISOPROPYL ALCOHOL
     Indication: Haemorrhage
     Dosage: UNK, AS NEEDED (INJECT 7,500 UNITS +/- 10% INTO VEIN DAILY AS NEEDED FOR BLEEDING)
     Route: 042
  2. BENEFIX [Suspect]
     Active Substance: COAGULATION FACTOR IX RECOMBINANT HUMAN\ISOPROPYL ALCOHOL
     Dosage: 250 UNIT INTRAVENOUS KIT (COAGULATION FACTOR IX (RECOMB)) SIG: INJECT 7,500 UNITS INTO THE VEINDAILY
     Route: 042

REACTIONS (2)
  - Ligament sprain [Unknown]
  - Wrist fracture [Unknown]
